FAERS Safety Report 7438099-0 (Version None)
Quarter: 2011Q2

REPORT INFORMATION
  Report Type: 
  Country: None (occurrence: None)
  Receive Date: 20110426
  Receipt Date: 20110422
  Transmission Date: 20111010
  Serious: Yes (Other)
  Sender: FDA-Public Use
  Company Number: US-PFIZER INC-2011088176

PATIENT
  Sex: Female
  Weight: 16.3 kg

DRUGS (4)
  1. NASONEX [Concomitant]
     Dosage: 50 MG/ACTIVATION, INTRANASAL
  2. MELATONIN [Concomitant]
     Dosage: 1.5 MG PAP, UNK
     Route: 048
  3. SOMATROPIN [Suspect]
     Indication: TURNER'S SYNDROME
     Dosage: 0.6 MG, QHS
     Route: 058
     Dates: start: 20100808, end: 20110101
  4. DEXMETHYLPHENIDATE HYDROCHLORIDE [Concomitant]
     Dosage: 10 MG, UNK
     Route: 048
     Dates: start: 20080101

REACTIONS (1)
  - IRRITABILITY [None]
